FAERS Safety Report 6531290-7 (Version None)
Quarter: 2009Q4

REPORT INFORMATION
  Report Type: 
  Country: None (occurrence: None)
  Receive Date: 20091222
  Receipt Date: 20091110
  Transmission Date: 20100525
  Serious: No
  Sender: FDA-Public Use
  Company Number: ALL1-2009-03605

PATIENT
  Age: 18 Year
  Sex: Female
  Weight: 59 kg

DRUGS (4)
  1. VYVANSE [Suspect]
     Indication: ATTENTION DEFICIT/HYPERACTIVITY DISORDER
     Dosage: 30 MG, 1X/DAY:QD, ORAL ; 50 MG, 1X/DAY:QD, ORAL
     Route: 048
     Dates: start: 20090901, end: 20091001
  2. VYVANSE [Suspect]
     Indication: ATTENTION DEFICIT/HYPERACTIVITY DISORDER
     Dosage: 30 MG, 1X/DAY:QD, ORAL ; 50 MG, 1X/DAY:QD, ORAL
     Route: 048
     Dates: start: 20091001
  3. ABILIFY [Concomitant]
  4. LEXAPRO [Concomitant]

REACTIONS (4)
  - CHEST DISCOMFORT [None]
  - ERYTHEMA [None]
  - HEART RATE INCREASED [None]
  - HOT FLUSH [None]
